FAERS Safety Report 17812175 (Version 1)
Quarter: 2020Q2

REPORT INFORMATION
  Report Type: Report from Study
  Country: FR (occurrence: FR)
  Receive Date: 20200521
  Receipt Date: 20200521
  Transmission Date: 20200714
  Serious: Yes (Other)
  Sender: FDA-Public Use
  Company Number: FR-PFIZER INC-2020199231

PATIENT
  Weight: 29.4 kg

DRUGS (3)
  1. DOXORUBICIN HCL [Suspect]
     Active Substance: DOXORUBICIN HYDROCHLORIDE
     Indication: NEOPLASM MALIGNANT
     Dosage: UNK
     Route: 042
     Dates: start: 20161104, end: 20161125
  2. CYCLOPHOSPHAMIDE. [Suspect]
     Active Substance: CYCLOPHOSPHAMIDE
     Indication: NEOPLASM MALIGNANT
     Dosage: UNK
     Route: 042
     Dates: start: 20161014, end: 20161124
  3. DEFITELIO [Suspect]
     Active Substance: DEFIBROTIDE SODIUM
     Indication: VENOOCCLUSIVE LIVER DISEASE
     Dosage: 25 MILLIGRAM/KILOGRAM/DAY
     Route: 042
     Dates: start: 20161205, end: 20161214

REACTIONS (2)
  - Condition aggravated [Recovered/Resolved]
  - Venoocclusive liver disease [Recovered/Resolved]

NARRATIVE: CASE EVENT DATE: 20161208
